FAERS Safety Report 13598825 (Version 11)
Quarter: 2018Q2

REPORT INFORMATION
  Report Type: Report from Study
  Country: ES (occurrence: ES)
  Receive Date: 20170531
  Receipt Date: 20180409
  Transmission Date: 20180711
  Serious: Yes (Other)
  Sender: FDA-Public Use
  Company Number: ES-ALEXION-A201705633

PATIENT
  Age: 6 Year
  Sex: Male
  Weight: 22.5 kg

DRUGS (18)
  1. ASFOTASE ALFA [Suspect]
     Active Substance: ASFOTASE ALFA
     Dosage: 3 MG/KG, TIW
     Route: 058
     Dates: start: 20160527
  2. ASFOTASE ALFA [Suspect]
     Active Substance: ASFOTASE ALFA
     Dosage: 6 MG/KG, UNK
     Route: 065
     Dates: start: 20170901
  3. ACETAMINOPHEN. [Concomitant]
     Active Substance: ACETAMINOPHEN
     Indication: PRODUCT USED FOR UNKNOWN INDICATION
     Dosage: UNK
     Route: 065
  4. PANTOPRAZOL [Concomitant]
     Active Substance: PANTOPRAZOLE SODIUM
     Indication: PRODUCT USED FOR UNKNOWN INDICATION
     Dosage: 10 MG, QD
     Route: 065
  5. ASFOTASE ALFA [Suspect]
     Active Substance: ASFOTASE ALFA
     Dosage: 2 MG/KG, TIW
     Route: 058
     Dates: start: 20170901
  6. ASFOTASE ALFA [Suspect]
     Active Substance: ASFOTASE ALFA
     Dosage: 18 MG/KG, QW
     Route: 065
  7. ASFOTASE ALFA [Suspect]
     Active Substance: ASFOTASE ALFA
     Dosage: 6 MG/KG/DOSE
     Route: 065
     Dates: start: 20170327
  8. ASFOTASE ALFA [Suspect]
     Active Substance: ASFOTASE ALFA
     Dosage: 4 MG/KG, TIW
     Route: 058
     Dates: start: 20161130
  9. ASFOTASE ALFA [Suspect]
     Active Substance: ASFOTASE ALFA
     Dosage: 18 MG/KG, QW
     Route: 065
     Dates: start: 20170125
  10. ASFOTASE ALFA [Suspect]
     Active Substance: ASFOTASE ALFA
     Indication: HYPOPHOSPHATASIA
     Dosage: 2 MG/KG, TIW
     Route: 058
     Dates: start: 2012
  11. ASFOTASE ALFA [Suspect]
     Active Substance: ASFOTASE ALFA
     Dosage: UNK
     Route: 058
     Dates: start: 20160623
  12. ASFOTASE ALFA [Suspect]
     Active Substance: ASFOTASE ALFA
     Dosage: 6 MG/KG, TIW
     Route: 058
     Dates: start: 20170125, end: 20170721
  13. ASFOTASE ALFA [Suspect]
     Active Substance: ASFOTASE ALFA
     Dosage: 6 MG/KG, TIW
     Route: 058
     Dates: start: 20170901
  14. ASFOTASE ALFA [Suspect]
     Active Substance: ASFOTASE ALFA
     Dosage: 9 MG/KG, TIW
     Route: 065
  15. ASFOTASE ALFA [Suspect]
     Active Substance: ASFOTASE ALFA
     Dosage: 12 MG/KG, TIW
     Route: 065
     Dates: start: 20161130
  16. ASFOTASE ALFA [Suspect]
     Active Substance: ASFOTASE ALFA
     Dosage: 18 MG/KG, QW
     Route: 065
  17. IBUPROFEN. [Concomitant]
     Active Substance: IBUPROFEN
     Indication: BONE PAIN
     Dosage: 10 MG/KG, PRN
     Route: 065
  18. ESOMEPRAZOLE [Concomitant]
     Active Substance: ESOMEPRAZOLE
     Indication: ABDOMINAL PAIN UPPER
     Dosage: 10 MG, QD
     Route: 065

REACTIONS (15)
  - Drug resistance [Unknown]
  - Blood alkaline phosphatase increased [Not Recovered/Not Resolved]
  - Pain in extremity [Recovered/Resolved]
  - Musculoskeletal pain [Recovered/Resolved]
  - Asthenia [Recovered/Resolved]
  - B-lymphocyte count decreased [Unknown]
  - Neutralising antibodies positive [Recovered/Resolved]
  - Vitamin B6 increased [Not Recovered/Not Resolved]
  - Vitamin D decreased [Unknown]
  - Blood phosphorus increased [Unknown]
  - Drug ineffective [Recovered/Resolved]
  - Blood parathyroid hormone increased [Unknown]
  - Condition aggravated [Recovered/Resolved]
  - Mobility decreased [Recovered/Resolved]
  - Headache [Recovered/Resolved]

NARRATIVE: CASE EVENT DATE: 20160527
